FAERS Safety Report 8276048-6 (Version None)
Quarter: 2012Q2

REPORT INFORMATION
  Report Type: 
  Country: None (occurrence: None)
  Receive Date: 20120412
  Receipt Date: 20120329
  Transmission Date: 20120825
  Serious: Yes (Hospitalization)
  Sender: FDA-Public Use
  Company Number: US-MYLANLABS-2012S1006969

PATIENT
  Age: 72 Year
  Sex: Female

DRUGS (5)
  1. VANCOMYCIN [Suspect]
     Indication: CELLULITIS
     Dosage: 1G EVERY 24 HOURS
     Route: 041
  2. METHYLPREDNISOLONE [Concomitant]
     Indication: GOUTY ARTHRITIS
     Dosage: 62.5MG
     Route: 040
  3. METHYLPREDNISOLONE [Concomitant]
     Dosage: 20MG DAILY FOR 2 DAYS
     Route: 048
  4. VANCOMYCIN [Suspect]
     Indication: ARTHRITIS INFECTIVE
     Dosage: 1G EVERY 24 HOURS
     Route: 041
  5. HYDROCHLOROTHIAZIDE [Suspect]
     Route: 065

REACTIONS (3)
  - GOUTY ARTHRITIS [None]
  - LINEAR IGA DISEASE [None]
  - EXTRAVASATION [None]
